FAERS Safety Report 14702582 (Version 1)
Quarter: 2018Q2

REPORT INFORMATION
  Report Type: Spontaneous
  Country: US (occurrence: US)
  Receive Date: 20180402
  Receipt Date: 20180402
  Transmission Date: 20180711
  Serious: No
  Sender: FDA-Public Use
  Company Number: US-SHIRE-US201812019

PATIENT
  Age: 81 Year
  Sex: Female
  Weight: 58.96 kg

DRUGS (1)
  1. XIIDRA [Suspect]
     Active Substance: LIFITEGRAST
     Indication: DRY EYE
     Dosage: 1 GTT EACH EYE, 2X/DAY:BID
     Route: 047
     Dates: start: 20180323

REACTIONS (7)
  - Instillation site paraesthesia [Unknown]
  - Vision blurred [Unknown]
  - Instillation site lacrimation [Unknown]
  - Inappropriate schedule of drug administration [Unknown]
  - Instillation site reaction [Unknown]
  - Instillation site pain [Unknown]
  - Instillation site pruritus [Unknown]

NARRATIVE: CASE EVENT DATE: 20180323
